FAERS Safety Report 26094661 (Version 1)
Quarter: 2025Q4

REPORT INFORMATION
  Report Type: Report from Study
  Country: US (occurrence: US)
  Receive Date: 20251126
  Receipt Date: 20251126
  Transmission Date: 20260117
  Serious: Yes (Hospitalization)
  Sender: SERVIER
  Company Number: None

PATIENT

DRUGS (2)
  1. CALASPARGASE PEGOL [Suspect]
     Active Substance: CALASPARGASE PEGOL
     Indication: Pancreatic carcinoma
     Dosage: 1537 IU (ONE DOSE), EVERY 3 WEEKS
     Route: 042
     Dates: start: 20250924, end: 20250924
  2. COBIMETINIB [Suspect]
     Active Substance: COBIMETINIB
     Indication: Pancreatic carcinoma
     Dosage: 60 MG, QD (ON DAYS 1-14 OF EACH 21-DAY CYCLE)
     Route: 048
     Dates: start: 20250924

REACTIONS (6)
  - Abdominal pain [Unknown]
  - Pyrexia [Unknown]
  - Blood alkaline phosphatase increased [Unknown]
  - Blood bilirubin increased [Unknown]
  - Bile duct stent insertion [Unknown]
  - Stent malfunction [Recovered/Resolved]

NARRATIVE: CASE EVENT DATE: 20251001
